FAERS Safety Report 4474376-3 (Version None)
Quarter: 2004Q4

REPORT INFORMATION
  Report Type: 
  Country: None (occurrence: None)
  Receive Date: 20041014
  Receipt Date: 20041006
  Transmission Date: 20050328
  Serious: Yes (Death)
  Sender: FDA-Public Use
  Company Number: US-MERCK-0410USA00900

PATIENT
  Age: 72 Year
  Sex: Male

DRUGS (3)
  1. LOPRESSOR [Concomitant]
     Route: 065
  2. PRAVACHOL [Concomitant]
     Route: 065
  3. VIOXX [Suspect]
     Indication: MONARTHRITIS
     Route: 048

REACTIONS (1)
  - MYOCARDIAL INFARCTION [None]
